FAERS Safety Report 15376339 (Version 2)
Quarter: 2018Q3

REPORT INFORMATION
  Report Type: Report from Study
  Country: RU (occurrence: RU)
  Receive Date: 20180912
  Receipt Date: 20180918
  Transmission Date: 20181010
  Serious: Yes (Hospitalization, Other)
  Sender: FDA-Public Use
  Company Number: RU-ASTRAZENECA-2018SF16253

PATIENT
  Age: 67 Year
  Sex: Male
  Weight: 60 kg

DRUGS (4)
  1. CARDIOMAGNYL [Concomitant]
     Active Substance: ASPIRIN\MAGNESIUM HYDROXIDE
     Dates: start: 201802
  2. BISOPROLOL, SORBIFER [Concomitant]
     Dates: start: 201802
  3. PRESTARIUM [Concomitant]
     Active Substance: PERINDOPRIL
     Dates: start: 201802
  4. BRILINTA [Suspect]
     Active Substance: TICAGRELOR
     Indication: ACUTE CORONARY SYNDROME
     Route: 048
     Dates: start: 201802

REACTIONS (5)
  - Pallor [Unknown]
  - Blood pressure decreased [Unknown]
  - Vascular stent occlusion [Recovered/Resolved]
  - Chest pain [Unknown]
  - Malaise [Unknown]

NARRATIVE: CASE EVENT DATE: 20180524
